FAERS Safety Report 25142992 (Version 1)
Quarter: 2025Q2

REPORT INFORMATION
  Report Type: Report from Study
  Country: US (occurrence: US)
  Receive Date: 20250401
  Receipt Date: 20250401
  Transmission Date: 20250717
  Serious: Yes (Other)
  Sender: ABBVIE
  Company Number: US-ABBVIE-6196971

PATIENT
  Sex: Female
  Weight: 49.895 kg

DRUGS (4)
  1. DUOPA [Suspect]
     Active Substance: CARBIDOPA\LEVODOPA
     Indication: Parkinson^s disease
     Route: 050
     Dates: start: 202310
  2. DUOPA [Suspect]
     Active Substance: CARBIDOPA\LEVODOPA
  3. BUDESONIDE [Concomitant]
     Active Substance: BUDESONIDE
     Indication: Respiratory disorder
  4. ALBUTEROL [Concomitant]
     Active Substance: ALBUTEROL
     Indication: Dyspnoea

REACTIONS (11)
  - Dyspnoea [Not Recovered/Not Resolved]
  - Therapeutic product effect decreased [Unknown]
  - Anxiety [Recovered/Resolved]
  - Neck pain [Not Recovered/Not Resolved]
  - Dyskinesia [Recovered/Resolved]
  - Paranoia [Not Recovered/Not Resolved]
  - Drug ineffective [Unknown]
  - Anxiety [Recovered/Resolved]
  - Anxiety [Unknown]
  - Anxiety [Unknown]
  - Dyskinesia [Unknown]

NARRATIVE: CASE EVENT DATE: 20241201
